FAERS Safety Report 25765287 (Version 1)
Quarter: 2025Q3

REPORT INFORMATION
  Report Type: Spontaneous
  Country: EU (occurrence: EU)
  Receive Date: 20250905
  Receipt Date: 20250905
  Transmission Date: 20251021
  Serious: Yes (Hospitalization)
  Sender: RANBAXY
  Company Number: EU-SUN PHARMACEUTICAL INDUSTRIES INC-2025RR-525715

PATIENT
  Age: 54 Year
  Sex: Male
  Weight: 80 kg

DRUGS (8)
  1. MORPHINE [Suspect]
     Active Substance: MORPHINE
     Indication: Product used for unknown indication
     Dosage: 0.5 MILLIGRAM, Q1H
     Route: 040
     Dates: start: 20250314, end: 20250318
  2. ACYCLOVIR [Suspect]
     Active Substance: ACYCLOVIR
     Indication: Product used for unknown indication
     Dosage: 250 MILLIGRAM, TID
     Route: 040
     Dates: start: 20250312
  3. PIPERACILLIN SODIUM\TAZOBACTAM SODIUM [Suspect]
     Active Substance: PIPERACILLIN SODIUM\TAZOBACTAM SODIUM
     Indication: Infection
     Dosage: 4 GRAM, QID
     Route: 040
     Dates: start: 20250317, end: 20250321
  4. ACUPAN [Suspect]
     Active Substance: NEFOPAM HYDROCHLORIDE
     Indication: Pain
     Dosage: 120 MILLIGRAM, QD
     Route: 040
     Dates: start: 20250303, end: 20250320
  5. AMBISOME [Suspect]
     Active Substance: AMPHOTERICIN B
     Indication: Infection
     Dosage: 250 MILLIGRAM, QD
     Route: 040
     Dates: start: 20250317, end: 20250321
  6. MORPHINE SULFATE [Suspect]
     Active Substance: MORPHINE SULFATE
     Indication: Pain
     Route: 002
     Dates: start: 20250312, end: 20250319
  7. ONDANSETRON [Concomitant]
     Active Substance: ONDANSETRON
     Indication: Product used for unknown indication
     Dosage: 16 MILLIGRAM, QD
     Route: 040
     Dates: start: 20250303, end: 20250318
  8. METOCLOPRAMIDE [Concomitant]
     Active Substance: METOCLOPRAMIDE
     Indication: Product used for unknown indication
     Route: 040
     Dates: start: 20250306, end: 20250318

REACTIONS (1)
  - Encephalopathy [Recovered/Resolved]

NARRATIVE: CASE EVENT DATE: 20250320
